FAERS Safety Report 6535227-6 (Version None)
Quarter: 2010Q1

REPORT INFORMATION
  Report Type: 
  Country: None (occurrence: None)
  Receive Date: 20100105
  Receipt Date: 20091228
  Transmission Date: 20100710
  Serious: Yes (Hospitalization)
  Sender: FDA-Public Use
  Company Number: CERZ-1001070

PATIENT
  Age: 55 Year
  Sex: Male

DRUGS (4)
  1. CEREZYME [Suspect]
     Indication: GAUCHER'S DISEASE
     Dosage: 6000 U, Q2W, INTRAVENOUS
     Route: 042
  2. OXYCONTIN [Concomitant]
  3. HYDROCODONE (HYDROCODONE) [Concomitant]
  4. AMBIEN [Concomitant]

REACTIONS (1)
  - TIBIA FRACTURE [None]
